FAERS Safety Report 10365717 (Version 2)
Quarter: 2014Q4

REPORT INFORMATION
  Report Type: Spontaneous
  Country: US (occurrence: None)
  Receive Date: 20140804
  Receipt Date: 20141110
  Transmission Date: 20150528
  Serious: Yes (Hospitalization, Other)
  Sender: FDA-Public Use
  Company Number: 2014-US-004458

PATIENT
  Age: 29 Year
  Sex: Female
  Weight: 61.2 kg

DRUGS (5)
  1. ARANELLE (ETHINYLESTRADIOL, NORETHISTERONE) [Concomitant]
  2. TRAMADOL (TRAMADOL HYDROCHLORIDE) [Concomitant]
     Active Substance: TRAMADOL HYDROCHLORIDE
  3. XYREM [Suspect]
     Active Substance: SODIUM OXYBATE
     Indication: NARCOLEPSY
     Route: 048
     Dates: start: 20140219, end: 2014
  4. XYREM [Suspect]
     Active Substance: SODIUM OXYBATE
     Indication: CATAPLEXY
     Route: 048
     Dates: start: 20140219, end: 2014
  5. ERRIN (NORETHISTERONE) [Concomitant]

REACTIONS (14)
  - Rash [None]
  - Intervertebral disc protrusion [None]
  - Nerve compression [None]
  - Fungal infection [None]
  - Respiratory disorder [None]
  - Hypoaesthesia [None]
  - Weight decreased [None]
  - Palpitations [None]
  - Decreased appetite [None]
  - Dysuria [None]
  - Muscle spasms [None]
  - Asthenia [None]
  - Irritability [None]
  - Back pain [None]

NARRATIVE: CASE EVENT DATE: 201402
